FAERS Safety Report 24603456 (Version 1)
Quarter: 2024Q4

REPORT INFORMATION
  Report Type: Spontaneous
  Country: CA (occurrence: CA)
  Receive Date: 20241111
  Receipt Date: 20241111
  Transmission Date: 20250115
  Serious: Yes (Hospitalization, Other)
  Sender: REGENERON
  Company Number: CA-ULTRAGENYX PHARMACEUTICAL INC.-CA-UGX-24-00692

PATIENT
  Sex: Male

DRUGS (5)
  1. EVKEEZA [Suspect]
     Active Substance: EVINACUMAB-DGNB
     Indication: Product used for unknown indication
     Dosage: UNK, INJECTION
  2. EVKEEZA [Suspect]
     Active Substance: EVINACUMAB-DGNB
     Dosage: UNK, INJECTION
  3. JUXTAPID [Concomitant]
     Active Substance: LOMITAPIDE MESYLATE
  4. EZETIMIBE [Concomitant]
     Active Substance: EZETIMIBE
  5. NYSTATIN [Concomitant]
     Active Substance: NYSTATIN

REACTIONS (1)
  - Acute myocardial infarction [Unknown]
